FAERS Safety Report 4341984-X (Version None)
Quarter: 2004Q1

REPORT INFORMATION
  Report Type: 
  Country: None (occurrence: None)
  Receive Date: 20040329
  Receipt Date: 20031218
  Transmission Date: 20041129
  Serious: No
  Sender: FDA-Public Use
  Company Number: 04P-163-0246117-00

PATIENT
  Age: 78 Year
  Sex: Male
  Weight: 81.6475 kg

DRUGS (4)
  1. HUMIRA [Suspect]
     Indication: RHEUMATOID ARTHRITIS
     Dosage: 40 MG, 1 IN 4 WK, SUBCUTANEOUS
     Route: 058
     Dates: start: 20030401
  2. TRAMADOL HCL [Concomitant]
  3. PREDNISONE [Concomitant]
  4. ACETAMINOPHEN [Concomitant]

REACTIONS (1)
  - RASH [None]
